FAERS Safety Report 6692917-2 (Version None)
Quarter: 2010Q2

REPORT INFORMATION
  Report Type: 
  Country: None (occurrence: None)
  Receive Date: 20100422
  Receipt Date: 20100408
  Transmission Date: 20101027
  Serious: Yes (Hospitalization)
  Sender: FDA-Public Use
  Company Number: BR-MEDIMMUNE-MEDI-0011081

PATIENT
  Sex: Male
  Weight: 8.7 kg

DRUGS (3)
  1. SYNAGIS [Suspect]
     Indication: RESPIRATORY DISORDER
     Dates: start: 20090608
  2. VITAMIN AD [Concomitant]
     Route: 048
  3. ASCORBIC ACID [Concomitant]
     Route: 048

REACTIONS (8)
  - BRONCHITIS [None]
  - DERMATITIS DIAPER [None]
  - DIARRHOEA [None]
  - GASTROOESOPHAGEAL REFLUX DISEASE [None]
  - INFLUENZA [None]
  - NASOPHARYNGITIS [None]
  - POOR QUALITY SLEEP [None]
  - VIRAL INFECTION [None]
